FAERS Safety Report 8429618-6 (Version None)
Quarter: 2012Q2

REPORT INFORMATION
  Report Type: 
  Country: None (occurrence: None)
  Receive Date: 20120612
  Receipt Date: 20120604
  Transmission Date: 20120825
  Serious: Yes (Death)
  Sender: FDA-Public Use
  Company Number: US-JNJFOC-20120521225

PATIENT
  Age: 61 Year
  Sex: Female

DRUGS (4)
  1. EXTRA STRENGTH TYLENOL [Suspect]
     Indication: PAIN
     Route: 048
     Dates: start: 19700101
  2. ACETAMINOPHEN [Suspect]
     Route: 048
  3. ACETAMINOPHEN [Suspect]
     Indication: PAIN
     Route: 048
  4. EXTRA STRENGTH TYLENOL [Suspect]
     Route: 048

REACTIONS (4)
  - INCORRECT DOSE ADMINISTERED [None]
  - PAIN [None]
  - HEPATIC FAILURE [None]
  - INTENTIONAL DRUG MISUSE [None]
